FAERS Safety Report 12418162 (Version 3)
Quarter: 2016Q3

REPORT INFORMATION
  Report Type: Spontaneous
  Country: DE (occurrence: DE)
  Receive Date: 20160531
  Receipt Date: 20160927
  Transmission Date: 20161109
  Serious: Yes (Hospitalization)
  Sender: FDA-Public Use
  Company Number: DE-AMGEN-DEUSP2016068125

PATIENT
  Sex: Male

DRUGS (34)
  1. PEGFILGRASTIM [Suspect]
     Active Substance: PEGFILGRASTIM
     Indication: B-CELL LYMPHOMA
     Dosage: 6 MG, ONE TIME DOSE,  1 IN 1 D
     Route: 058
     Dates: start: 20160516, end: 20160516
  2. NATRIUMPICOSULFAT [Concomitant]
     Indication: CONSTIPATION
     Dosage: UNK
  3. SULFAMETHOXAZOLE AND TRIMETHOPRIM [Concomitant]
     Active Substance: SULFAMETHOXAZOLE\TRIMETHOPRIM
     Indication: PROPHYLAXIS
     Dosage: 960 MG, (MONDAY, WEDNESDAY AND FRIDAY)
     Dates: start: 20160324
  4. AMPHOTERICIN B. [Concomitant]
     Active Substance: AMPHOTERICIN B
     Dosage: 2 PIPETTES; UNTIL LEUKOCYTE BECOME MORE THAT 1000 MCL (4 IN 1 D)
     Route: 048
  5. CIPROFLOXACIN. [Concomitant]
     Active Substance: CIPROFLOXACIN
     Dosage: 1-0-1 UNTIL LEUKOCYTE COUNT BECOME MORE THAT 1000 MCL (500 MG)
     Route: 048
  6. DOXORUBICIN [Suspect]
     Active Substance: DOXORUBICIN
     Indication: B-CELL LYMPHOMA
     Dosage: FIRST CYCLE
     Route: 065
     Dates: start: 20160318
  7. PANTOPRAZOL NATRIUM [Concomitant]
     Indication: PROPHYLAXIS
     Dosage: 40 MG, 1 IN 1D
     Dates: start: 20160322
  8. COLECALCIFEROL [Concomitant]
     Active Substance: CHOLECALCIFEROL
     Indication: VITAMIN D DEFICIENCY
     Dosage: 20000 IU, QWK
     Route: 048
     Dates: start: 20160516
  9. PANTOPRAZOL NATRIUM [Concomitant]
     Dosage: 40 MG
     Route: 048
     Dates: start: 20160512
  10. SULFAMETHOXAZOLE AND TRIMETHOPRIM [Concomitant]
     Active Substance: SULFAMETHOXAZOLE\TRIMETHOPRIM
     Dosage: 960 MG, UNK
     Dates: start: 20160518
  11. RITUXIMAB [Suspect]
     Active Substance: RITUXIMAB
     Dosage: 722 MG, ONE TIME DOSE,  1 IN 1 D
     Route: 042
     Dates: start: 20160512, end: 20160512
  12. PREDNISOLONE. [Suspect]
     Active Substance: PREDNISOLONE
     Indication: B-CELL LYMPHOMA
     Dosage: 100 MG, 1 IN 1 D
     Route: 048
     Dates: start: 20160226
  13. PREDNISOLONE. [Suspect]
     Active Substance: PREDNISOLONE
     Dosage: 100 MG, 1 IN 1 D
     Route: 048
     Dates: start: 20160513, end: 20160517
  14. VINCRISTINE [Suspect]
     Active Substance: VINCRISTINE
     Dosage: 3.98 MG, 1 IN 1 D
     Route: 042
     Dates: start: 20160513, end: 20160513
  15. DOXORUBICIN [Suspect]
     Active Substance: DOXORUBICIN
     Dosage: 95 MG, 1 IN 1 D
     Route: 042
     Dates: start: 20160513, end: 20160513
  16. MACROGOL 3350 W/POTASSIUM CHLORIDE [Concomitant]
     Indication: CONSTIPATION
     Dosage: UNK UNK, QD
     Dates: start: 20160323
  17. ACICLOVIR [Concomitant]
     Active Substance: ACYCLOVIR
     Dosage: 400 MG, 2 IN 1 D
     Dates: start: 20160518
  18. CYCLOPHOSPHAMIDE. [Suspect]
     Active Substance: CYCLOPHOSPHAMIDE
     Indication: B-CELL LYMPHOMA
     Dosage: FIRST CYCLE
     Route: 065
     Dates: start: 20160318
  19. VINCRISTINE [Suspect]
     Active Substance: VINCRISTINE
     Dosage: SECOND CYCLE
     Route: 065
     Dates: start: 20160401
  20. FOLSAEURE [Concomitant]
     Active Substance: FOLIC ACID
     Dosage: 5 MG, 1 IN 1D
     Route: 048
     Dates: start: 20160518
  21. ZOPICON [Concomitant]
     Indication: SLEEP DISORDER
     Dosage: UNK
  22. RITUXIMAB [Suspect]
     Active Substance: RITUXIMAB
     Indication: B-CELL LYMPHOMA
     Dosage: 750 MG, DAY 4 AND DAY 2
     Route: 042
     Dates: start: 20160302
  23. CYCLOPHOSPHAMIDE. [Suspect]
     Active Substance: CYCLOPHOSPHAMIDE
     Dosage: SECOND CYCLE
     Route: 065
     Dates: start: 20160401
  24. CYCLOPHOSPHAMIDE. [Suspect]
     Active Substance: CYCLOPHOSPHAMIDE
     Dosage: 1425 MG, 1 IN 1 D
     Route: 042
     Dates: start: 20160513, end: 20160513
  25. RAMIPRIL. [Concomitant]
     Active Substance: RAMIPRIL
     Indication: HYPERTENSION
     Dosage: 2.5 MG, 2 IN 1D
     Dates: start: 20160322
  26. BISOPROLOL [Concomitant]
     Active Substance: BISOPROLOL
     Indication: HYPERTENSION
     Dosage: 1.25 MG, 1 IN 1 D
     Dates: start: 20160322
  27. HYDROMORPHONE [Concomitant]
     Active Substance: HYDROMORPHONE
     Indication: PAIN
     Dosage: 4 MG, 2 IN 1 D
     Dates: start: 20160322
  28. CHOLECALCIFEROL [Concomitant]
     Active Substance: CHOLECALCIFEROL
     Indication: VITAMIN SUPPLEMENTATION
     Dosage: 20000 IU, 1 IN 1WK
     Dates: start: 20160329
  29. FEBUXOSTAT. [Concomitant]
     Active Substance: FEBUXOSTAT
     Indication: HYPERURICAEMIA
     Dosage: 80 MG, 1 IN 1D
     Route: 048
     Dates: start: 20160512
  30. DOXORUBICIN [Suspect]
     Active Substance: DOXORUBICIN
     Dosage: SECOND CYCLE
     Route: 065
     Dates: start: 20160401
  31. TAMSULOSIN [Concomitant]
     Active Substance: TAMSULOSIN
     Indication: BENIGN PROSTATIC HYPERPLASIA
     Dosage: 4 MG, 1 IN 1 D
     Dates: start: 20160322
  32. VINCRISTINE [Suspect]
     Active Substance: VINCRISTINE
     Indication: B-CELL LYMPHOMA
     Dosage: FIRST CYCLE
     Route: 065
     Dates: start: 20160318
  33. METAMIZOL NATRIUM [Concomitant]
     Indication: PAIN
     Dosage: 500 MG, 3 IN 1D
     Dates: start: 20160322
  34. HYDROMORPHONE [Concomitant]
     Active Substance: HYDROMORPHONE
     Dosage: 4 MG, 2 IN 1 D
     Route: 048
     Dates: start: 20160512

REACTIONS (2)
  - Hypotension [Recovered/Resolved]
  - Blood creatinine increased [Recovered/Resolved]

NARRATIVE: CASE EVENT DATE: 20160307
